FAERS Safety Report 6640481-6 (Version None)
Quarter: 2010Q1

REPORT INFORMATION
  Report Type: 
  Country: None (occurrence: None)
  Receive Date: 20100318
  Receipt Date: 20100306
  Transmission Date: 20100710
  Serious: Yes (Other)
  Sender: FDA-Public Use
  Company Number: JP-PFIZER INC-2010030298

PATIENT

DRUGS (1)
  1. CHAMPIX [Suspect]

REACTIONS (4)
  - CONDITION AGGRAVATED [None]
  - DEHYDRATION [None]
  - GASTRIC MUCOSAL LESION [None]
  - RENAL FAILURE ACUTE [None]
